FAERS Safety Report 13086081 (Version 1)
Quarter: 2017Q1

REPORT INFORMATION
  Report Type: Spontaneous
  Country: US (occurrence: US)
  Receive Date: 20170104
  Receipt Date: 20170104
  Transmission Date: 20170428
  Serious: Yes (Other)
  Sender: FDA-Public Use
  Company Number: US-RELYPSA-RLY2016004626

PATIENT
  Sex: Male

DRUGS (16)
  1. VELTASSA [Suspect]
     Active Substance: PATIROMER
     Indication: CHRONIC KIDNEY DISEASE
  2. ALBUTEROL SULFATE. [Concomitant]
     Active Substance: ALBUTEROL SULFATE
  3. ALLOPURINOL. [Concomitant]
     Active Substance: ALLOPURINOL
  4. LANTUS [Concomitant]
     Active Substance: INSULIN GLARGINE
  5. METOPROLOL TARTRATE. [Concomitant]
     Active Substance: METOPROLOL TARTRATE
  6. NITROGLYCERIN. [Concomitant]
     Active Substance: NITROGLYCERIN
  7. MAGNESIUM [Concomitant]
     Active Substance: MAGNESIUM
  8. AMLODIPINE BESYLATE. [Concomitant]
     Active Substance: AMLODIPINE BESYLATE
  9. ASPIRIN CHILDREN [Concomitant]
     Active Substance: ASPIRIN
  10. LISINOPRIL. [Concomitant]
     Active Substance: LISINOPRIL
  11. VELTASSA [Suspect]
     Active Substance: PATIROMER
     Indication: HYPERKALAEMIA
     Dosage: 8.4 G, QD
     Route: 048
     Dates: start: 20160610
  12. HUMALOG [Concomitant]
     Active Substance: INSULIN LISPRO
  13. PANTOPRAZOLE SODIUM. [Concomitant]
     Active Substance: PANTOPRAZOLE SODIUM
  14. TAMSULOSIN HCL [Concomitant]
     Active Substance: TAMSULOSIN
  15. TYLENOL [Concomitant]
     Active Substance: ACETAMINOPHEN
  16. METOCLOPRAMIDE HCL [Concomitant]
     Active Substance: METOCLOPRAMIDE HYDROCHLORIDE

REACTIONS (1)
  - Dialysis device insertion [Unknown]

NARRATIVE: CASE EVENT DATE: 2016
